FAERS Safety Report 10495148 (Version 1)
Quarter: 2014Q4

REPORT INFORMATION
  Report Type: Spontaneous
  Country: US (occurrence: None)
  Receive Date: 20141001
  Receipt Date: 20141001
  Transmission Date: 20150528
  Serious: Yes (Hospitalization, Other)
  Sender: FDA-Public Use
  Company Number: BD-2014-0097

PATIENT
  Age: 16 Year
  Sex: Female

DRUGS (3)
  1. ONDANSETRON (ONDANASETRON) UNKNOWN [Suspect]
     Active Substance: ONDANSETRON
     Indication: SUICIDE ATTEMPT
     Dosage: ONE TIME DOSE
  2. PENTOBARBITAL (PENTOBARBITAL) [Suspect]
     Active Substance: PENTOBARBITAL
     Indication: SUICIDE ATTEMPT
  3. ZOLPIDEM (ZOLPIDEM) [Concomitant]
     Active Substance: ZOLPIDEM TARTRATE

REACTIONS (20)
  - Unresponsive to stimuli [None]
  - Body temperature decreased [None]
  - Blood pH decreased [None]
  - Oxygen saturation decreased [None]
  - PCO2 increased [None]
  - Pallor [None]
  - Electrocardiogram QT prolonged [None]
  - Hypopnoea [None]
  - Heart rate increased [None]
  - Erythema [None]
  - Suicide attempt [None]
  - Dizziness [None]
  - Blister [None]
  - Chills [None]
  - Peripheral coldness [None]
  - Intentional overdose [None]
  - Balance disorder [None]
  - Pain [None]
  - Clonus [None]
  - Hypotension [None]
